FAERS Safety Report 6035930-0 (Version None)
Quarter: 2009Q1

REPORT INFORMATION
  Report Type: 
  Country: None (occurrence: None)
  Receive Date: 20090113
  Receipt Date: 20090108
  Transmission Date: 20090719
  Serious: Yes (Other)
  Sender: FDA-Public Use
  Company Number: B0549948A

PATIENT
  Age: 47 Year
  Sex: Female
  Weight: 63 kg

DRUGS (4)
  1. LAPATINIB [Suspect]
     Indication: BREAST CANCER
     Dosage: 1250MG PER DAY
     Route: 048
     Dates: start: 20080924
  2. RADIATION THERAPY [Suspect]
     Dates: start: 20080916, end: 20081023
  3. ISCADOR [Concomitant]
     Indication: BREAST CANCER
     Route: 058
     Dates: start: 20080401, end: 20081111
  4. ANTRA 20 [Concomitant]
     Dosage: 20MG PER DAY
     Route: 048
     Dates: start: 20080601

REACTIONS (3)
  - CHILLS [None]
  - PYREXIA [None]
  - RADIATION PNEUMONITIS [None]
